FAERS Safety Report 12562450 (Version 1)
Quarter: 2016Q3

REPORT INFORMATION
  Report Type: Spontaneous
  Country: SE (occurrence: SE)
  Receive Date: 20160715
  Receipt Date: 20160715
  Transmission Date: 20161109
  Serious: Yes (Disabling)
  Sender: FDA-Public Use
  Company Number: SE-TEVA-675723ISR

PATIENT
  Age: 41 Year
  Sex: Male

DRUGS (1)
  1. ENALAPRIL COMP [Suspect]
     Active Substance: ENALAPRIL MALEATE\HYDROCHLOROTHIAZIDE
     Dosage: ENALAPRIL 20MG/HYDROCHLOROTHIAZIDE 12.5 MG
     Route: 048

REACTIONS (1)
  - Erectile dysfunction [Not Recovered/Not Resolved]
